FAERS Safety Report 22650500 (Version 1)
Quarter: 2023Q2

REPORT INFORMATION
  Report Type: Spontaneous
  Country: US (occurrence: US)
  Receive Date: 20230628
  Receipt Date: 20230628
  Transmission Date: 20230721
  Serious: Yes (Death)
  Sender: FDA-Public Use
  Company Number: US-ABBVIE-5307968

PATIENT
  Age: 67 Year
  Sex: Male

DRUGS (1)
  1. IMBRUVICA [Suspect]
     Active Substance: IBRUTINIB
     Indication: Product used for unknown indication
     Dosage: FORM STRENGTH: 420 MG
     Route: 048
     Dates: start: 20230124

REACTIONS (1)
  - Death [Fatal]

NARRATIVE: CASE EVENT DATE: 20230616
